FAERS Safety Report 23518839 (Version 3)
Quarter: 2024Q1

REPORT INFORMATION
  Report Type: Report from Study
  Country: US (occurrence: US)
  Receive Date: 20240213
  Receipt Date: 20240228
  Transmission Date: 20240409
  Serious: Yes (Hospitalization, Other)
  Sender: FDA-Public Use
  Company Number: US-ABBVIE-5628164

PATIENT
  Sex: Male

DRUGS (2)
  1. SKYRIZI [Suspect]
     Active Substance: RISANKIZUMAB-RZAA
     Indication: Crohn^s disease
     Route: 058
     Dates: start: 20230713
  2. SKYRIZI [Suspect]
     Active Substance: RISANKIZUMAB-RZAA
     Dosage: LAST ADMIN DATE: 2023
     Route: 058
     Dates: start: 20230209

REACTIONS (12)
  - Suicidal ideation [Not Recovered/Not Resolved]
  - White blood cell count increased [Not Recovered/Not Resolved]
  - Tremor [Unknown]
  - Drug ineffective [Unknown]
  - Clavicle fracture [Unknown]
  - Loss of personal independence in daily activities [Unknown]
  - Anal fistula [Not Recovered/Not Resolved]
  - Colorectal cancer [Not Recovered/Not Resolved]
  - Fistula discharge [Not Recovered/Not Resolved]
  - Crohn^s disease [Unknown]
  - Platelet count abnormal [Unknown]
  - Depression [Not Recovered/Not Resolved]
